FAERS Safety Report 5019711-2 (Version None)
Quarter: 2006Q2

REPORT INFORMATION
  Report Type: 
  Country: None (occurrence: None)
  Receive Date: 20060607
  Receipt Date: 20060529
  Transmission Date: 20061013
  Serious: Yes (Other)
  Sender: FDA-Public Use
  Company Number: US-JNJFOC-20060506491

PATIENT
  Age: 18 Year
  Sex: Female
  Weight: 63.5 kg

DRUGS (2)
  1. REMICADE [Suspect]
     Indication: COLITIS ULCERATIVE
     Route: 042
  2. STEROIDS [Concomitant]
     Indication: COLITIS ULCERATIVE
     Route: 042

REACTIONS (4)
  - DEPRESSION [None]
  - MENSTRUATION IRREGULAR [None]
  - PITUITARY-DEPENDENT CUSHING'S SYNDROME [None]
  - WEIGHT INCREASED [None]
